FAERS Safety Report 14843031 (Version 1)
Quarter: 2018Q2

REPORT INFORMATION
  Report Type: Spontaneous
  Country: CA (occurrence: CA)
  Receive Date: 20180503
  Receipt Date: 20180503
  Transmission Date: 20180711
  Serious: Yes (Death, Hospitalization, Other)
  Sender: FDA-Public Use
  Company Number: CA-PURDUE PHARMA-CAN-2018-0008602

PATIENT
  Age: 38 Year
  Sex: Male

DRUGS (2)
  1. HYDROMORPHONE HYDROCHLORIDE. [Suspect]
     Active Substance: HYDROMORPHONE HYDROCHLORIDE
     Indication: PAIN
  2. HYDROMORPHONE HYDROCHLORIDE. [Suspect]
     Active Substance: HYDROMORPHONE HYDROCHLORIDE
     Indication: DRUG ABUSE
     Dosage: UNK
     Route: 042
     Dates: start: 201403

REACTIONS (11)
  - Drug abuse [Unknown]
  - Overdose [Fatal]
  - Thrombosis [Fatal]
  - Cardiac arrest [Fatal]
  - Cardiovascular insufficiency [Unknown]
  - Sepsis [Fatal]
  - Respiratory distress [Unknown]
  - Multiple organ dysfunction syndrome [Fatal]
  - Toxicity to various agents [Fatal]
  - Shock [Unknown]
  - Life support [Unknown]

NARRATIVE: CASE EVENT DATE: 201403
